FAERS Safety Report 16736665 (Version 3)
Quarter: 2020Q2

REPORT INFORMATION
  Report Type: Spontaneous
  Country: JP (occurrence: JP)
  Receive Date: 20190823
  Receipt Date: 20200616
  Transmission Date: 20200713
  Serious: Yes (Death, Other)
  Sender: FDA-Public Use
  Company Number: JP-009507513-1908JPN000141J

PATIENT
  Age: 76 Year
  Sex: Male
  Weight: 50 kg

DRUGS (1)
  1. KEYTRUDA [Suspect]
     Active Substance: PEMBROLIZUMAB
     Indication: TRANSITIONAL CELL CARCINOMA
     Dosage: 200 MILLIGRAM, Q3W
     Route: 041
     Dates: start: 20190617, end: 20190617

REACTIONS (11)
  - Acute respiratory distress syndrome [Unknown]
  - Pneumonia aspiration [Unknown]
  - Urinary tract infection [Unknown]
  - Interstitial lung disease [Fatal]
  - Pneumonia cytomegaloviral [Fatal]
  - Disseminated intravascular coagulation [Unknown]
  - Hyperkalaemia [Unknown]
  - Disuse syndrome [Unknown]
  - Platelet count decreased [Unknown]
  - Hydronephrosis [Unknown]
  - Renal impairment [Unknown]

NARRATIVE: CASE EVENT DATE: 20190621
